FAERS Safety Report 7601523-4 (Version None)
Quarter: 2011Q3

REPORT INFORMATION
  Report Type: 
  Country: None (occurrence: None)
  Receive Date: 20110711
  Receipt Date: 20110627
  Transmission Date: 20111222
  Serious: Yes (Hospitalization, Other)
  Sender: FDA-Public Use
  Company Number: PHHY2011US51428

PATIENT
  Age: 96 Year
  Sex: Female

DRUGS (9)
  1. CELEBREX [Concomitant]
     Dosage: 100 MG, UNK
  2. ASPIRIN [Concomitant]
  3. VITAMIN D [Concomitant]
  4. AZOPT [Concomitant]
     Dosage: ONE PERCENT
  5. TEKTURNA [Suspect]
     Dosage: 150 MG, QD
  6. THYROID TAB [Concomitant]
     Dosage: ONE GRAIN
  7. BETIMOL [Concomitant]
     Dosage: BID
  8. NORVASC [Concomitant]
     Dosage: 5 MG, UNK
  9. CALCIUM CARBONATE [Concomitant]
     Dosage: 50,000 UNIT

REACTIONS (5)
  - HYPOTENSION [None]
  - FALL [None]
  - BLOOD PRESSURE INCREASED [None]
  - UPPER LIMB FRACTURE [None]
  - HEADACHE [None]
